FAERS Safety Report 16691561 (Version 1)
Quarter: 2019Q3

REPORT INFORMATION
  Report Type: Report from Study
  Country: CN (occurrence: CN)
  Receive Date: 20190812
  Receipt Date: 20190812
  Transmission Date: 20191004
  Serious: Yes (Other)
  Sender: FDA-Public Use
  Company Number: CN-ROCHE-2375775

PATIENT

DRUGS (2)
  1. OXALIPLATIN. [Suspect]
     Active Substance: OXALIPLATIN
     Indication: GASTRIC CANCER
     Dosage: ADMINISTERED ON DAY 1, CONTINUOUSLY FOR 3 COURSES OF TREATMENT, EACH COURSE OF TREATMENT LASTS FOR 3
     Route: 041
  2. CAPECITABINE. [Suspect]
     Active Substance: CAPECITABINE
     Indication: GASTRIC CANCER
     Dosage: ADMINISTERED FROM DAY 1 TO DAY 14, CONTINUOUSLY FOR 3 COURSES OF TREATMENT, EACH COURSE OF TREATMENT
     Route: 048

REACTIONS (4)
  - Alopecia [Unknown]
  - Bone marrow failure [Unknown]
  - Gastrointestinal disorder [Unknown]
  - Renal impairment [Unknown]
